FAERS Safety Report 7284751-X (Version None)
Quarter: 2011Q1

REPORT INFORMATION
  Report Type: 
  Country: None (occurrence: None)
  Receive Date: 20110210
  Receipt Date: 20091019
  Transmission Date: 20110831
  Serious: No
  Sender: FDA-Public Use
  Company Number: 2009BI034449

PATIENT
  Age: 46 Year
  Sex: Male

DRUGS (3)
  1. AVONEX [Concomitant]
     Indication: MULTIPLE SCLEROSIS
     Route: 030
     Dates: start: 20040305
  2. TYSABRI [Suspect]
     Indication: MULTIPLE SCLEROSIS
     Route: 042
     Dates: start: 20090919
  3. AVONEX [Concomitant]
     Route: 030
     Dates: start: 20100901

REACTIONS (6)
  - HEADACHE [None]
  - TREMOR [None]
  - NAUSEA [None]
  - VOMITING [None]
  - CHILLS [None]
  - DYSPNOEA [None]
